FAERS Safety Report 9901560 (Version 2)
Quarter: 2014Q1

REPORT INFORMATION
  Report Type: Spontaneous
  Country: US (occurrence: US)
  Receive Date: 20140217
  Receipt Date: 20140217
  Transmission Date: 20141002
  Serious: No
  Sender: FDA-Public Use
  Company Number: US-GILEAD-2011-0042265

PATIENT
  Age: 51 Year
  Sex: Female

DRUGS (1)
  1. LETAIRIS [Suspect]
     Indication: PULMONARY HYPERTENSION
     Route: 048
     Dates: end: 20110718

REACTIONS (6)
  - Renal impairment [Recovered/Resolved]
  - Hypoaesthesia [Recovered/Resolved]
  - Functional gastrointestinal disorder [Recovered/Resolved]
  - Weight increased [Recovered/Resolved]
  - Abdominal pain [Recovered/Resolved]
  - Swelling [Recovered/Resolved]
